FAERS Safety Report 12389589 (Version 1)
Quarter: 2016Q2

REPORT INFORMATION
  Report Type: Spontaneous
  Country: US (occurrence: US)
  Receive Date: 20160520
  Receipt Date: 20160520
  Transmission Date: 20160815
  Serious: Yes (Hospitalization, Other)
  Sender: FDA-Public Use
  Company Number: US-MDT-ADR-2015-02320

PATIENT
  Age: 66 Year
  Sex: Male

DRUGS (3)
  1. BACLOFEN. [Suspect]
     Active Substance: BACLOFEN
     Dosage: 80 MCG/DAY
     Route: 037
  2. PAIN MEDS [Suspect]
     Active Substance: UNSPECIFIED INGREDIENT
     Route: 048
  3. BACLOFEN. [Suspect]
     Active Substance: BACLOFEN
     Dosage: 50 MCG/DAY
     Route: 037

REACTIONS (7)
  - Dysstasia [Unknown]
  - No therapeutic response [Unknown]
  - Abasia [Unknown]
  - Urinary tract infection [Unknown]
  - Pain [Unknown]
  - Nephrolithiasis [Unknown]
  - Lethargy [Unknown]

NARRATIVE: CASE EVENT DATE: 20150624
